FAERS Safety Report 13011372 (Version 1)
Quarter: 2016Q4

REPORT INFORMATION
  Report Type: Report from Study
  Country: NL (occurrence: NL)
  Receive Date: 20161209
  Receipt Date: 20161209
  Transmission Date: 20170207
  Serious: Yes (Other)
  Sender: FDA-Public Use
  Company Number: NL-AMGEN-NLDSL2016172091

PATIENT
  Age: 76 Year
  Sex: Male

DRUGS (12)
  1. XGEVA [Suspect]
     Active Substance: DENOSUMAB
     Indication: METASTASES TO BONE
     Dosage: 120 MG, Q3WK
     Route: 058
     Dates: start: 20160503
  2. DOCETAXEL. [Concomitant]
     Active Substance: DOCETAXEL
     Dosage: 20 MG/ML, UNK (FL 1 ML FIXED INTERVAL LN[1,20]LD(ZN))
     Dates: start: 20160929
  3. CALCI CHEW D3 [Concomitant]
     Active Substance: CALCIUM CARBONATE\CHOLECALCIFEROL
     Dosage: 1000 MG/800IE, (FIXED INTERVAL 1D (1))
     Dates: start: 20150727
  4. PREDNISON [Concomitant]
     Active Substance: PREDNISONE
     Dosage: 5 MG, QD  (FIXED DAILY 2D (1))
     Dates: start: 20160919
  5. GOSERELINE [Concomitant]
     Active Substance: GOSERELIN
     Dosage: 10.8 MG, UNK (FIXED INTERVAL IN (1.89) 1D (1))
     Dates: start: 20150903
  6. METOCLOPRAMIDE. [Concomitant]
     Active Substance: METOCLOPRAMIDE
     Dosage: 10 MG, QD (FIXED DAILY 3DZN (1))
     Dates: start: 20160919
  7. ZOLADEX [Concomitant]
     Active Substance: GOSERELIN ACETATE
     Indication: HORMONE-REFRACTORY PROSTATE CANCER
     Dosage: UNK
     Dates: start: 20160503
  8. XGEVA [Suspect]
     Active Substance: DENOSUMAB
     Dosage: 70 MG/ML, UNK (FIXED INTERVAL IN (1.20)1D (120))
     Route: 058
  9. DEXAMETHASON [Concomitant]
     Active Substance: DEXAMETHASONE
  10. CIALIS [Concomitant]
     Active Substance: TADALAFIL
     Dosage: 10 MG, (FIXED WEEK WK (ZA) 1ZN (1))
     Dates: start: 20141113
  11. TAMSULOSINE [Concomitant]
     Active Substance: TAMSULOSIN HYDROCHLORIDE
     Dosage: 0.4 MG, (FIXED DAILY 1D (1))
     Dates: start: 20131205
  12. TEMAZEPAM. [Concomitant]
     Active Substance: TEMAZEPAM
     Dosage: 10 MG, (FIXED DAILY 1D (1))
     Dates: start: 20131031

REACTIONS (1)
  - Osteonecrosis of jaw [Unknown]
